FAERS Safety Report 21250252 (Version 1)
Quarter: 2022Q3

REPORT INFORMATION
  Report Type: Spontaneous
  Country: US (occurrence: None)
  Receive Date: 20220823
  Receipt Date: 20220823
  Transmission Date: 20221027
  Serious: Yes (Hospitalization)
  Sender: FDA-Public Use
  Company Number: None

PATIENT
  Sex: Female

DRUGS (2)
  1. LETROZOLE [Suspect]
     Active Substance: LETROZOLE
     Indication: Breast cancer female
     Dosage: 2.5MG DAILY ORAL
     Route: 048
     Dates: start: 201511
  2. VERZENIO [Suspect]
     Active Substance: ABEMACICLIB
     Indication: Breast cancer female
     Dosage: 100MG TWICE DAILY ORAL?
     Route: 048
     Dates: start: 202005

REACTIONS (1)
  - Intestinal obstruction [None]
